FAERS Safety Report 4355463-7 (Version None)
Quarter: 2004Q2

REPORT INFORMATION
  Report Type: 
  Country: None (occurrence: None)
  Receive Date: 20040510
  Receipt Date: 20040420
  Transmission Date: 20050107
  Serious: Yes (Death, Hospitalization)
  Sender: FDA-Public Use
  Company Number: BE-MERCK-0404BEL00028

PATIENT
  Age: 10 Year
  Sex: Male

DRUGS (4)
  1. BUDESONIDE AND FORMOTEROL FUMARATE [Concomitant]
     Route: 055
  2. FLUTICASONE PROPIONATE AND SALMETEROL XINAFOATE [Concomitant]
     Route: 055
  3. SINGULAIR [Suspect]
     Indication: ASTHMA
     Route: 048
  4. SINGULAIR [Suspect]
     Route: 048
     Dates: start: 20030101, end: 20030101

REACTIONS (4)
  - ALLERGIC GRANULOMATOUS ANGIITIS [None]
  - CARDIAC FAILURE [None]
  - CARDIAC GRANULOMA [None]
  - LUNG DISORDER [None]
